FAERS Safety Report 17710444 (Version 1)
Quarter: 2020Q2

REPORT INFORMATION
  Report Type: Spontaneous
  Country: US (occurrence: US)
  Receive Date: 20200427
  Receipt Date: 20200427
  Transmission Date: 20200714
  Serious: No
  Sender: FDA-Public Use
  Company Number: US-MYLANLABS-2020M1040706

PATIENT
  Age: 69 Year
  Sex: Female

DRUGS (3)
  1. CLONIDINE. [Suspect]
     Active Substance: CLONIDINE
     Indication: PAIN
     Dosage: 10 MICROGRAM, QH
     Route: 037
     Dates: start: 2019
  2. ANASTROZOLE. [Suspect]
     Active Substance: ANASTROZOLE
     Indication: BREAST CANCER
     Dosage: 1 TABLET BY MOUTH
     Route: 048
     Dates: start: 201909
  3. CLONIDINE. [Suspect]
     Active Substance: CLONIDINE
     Dosage: 14 MICROGRAM, QH
     Route: 037
     Dates: start: 2019

REACTIONS (2)
  - Peripheral swelling [Not Recovered/Not Resolved]
  - Dry mouth [Not Recovered/Not Resolved]

NARRATIVE: CASE EVENT DATE: 201911
